FAERS Safety Report 7383160-2 (Version None)
Quarter: 2011Q1

REPORT INFORMATION
  Report Type: 
  Country: None (occurrence: None)
  Receive Date: 20110330
  Receipt Date: 20110328
  Transmission Date: 20110831
  Serious: Yes (Other)
  Sender: FDA-Public Use
  Company Number: US-AMGEN-USASP2011014238

PATIENT
  Sex: Female

DRUGS (3)
  1. NPLATE [Suspect]
     Indication: IDIOPATHIC THROMBOCYTOPENIC PURPURA
     Dosage: 1 A?G/KG, UNK
     Dates: start: 20100907, end: 20101104
  2. IMMUNOGLOBULINS [Concomitant]
  3. CORTICOSTEROIDS [Concomitant]

REACTIONS (3)
  - THROMBOSIS [None]
  - DIALYSIS [None]
  - PLATELET COUNT INCREASED [None]
